FAERS Safety Report 9433255 (Version 1)
Quarter: 2013Q3

REPORT INFORMATION
  Report Type: Spontaneous
  Country: FR (occurrence: FR)
  Receive Date: 20130731
  Receipt Date: 20130731
  Transmission Date: 20140515
  Serious: Yes (Hospitalization)
  Sender: FDA-Public Use
  Company Number: FR-GLAXOSMITHKLINE-B0910457A

PATIENT
  Age: 58 Year
  Sex: Male

DRUGS (2)
  1. ZINNAT [Suspect]
     Indication: PRODUCT USED FOR UNKNOWN INDICATION
     Route: 048
     Dates: start: 201303, end: 201303
  2. CIBADREX [Concomitant]
     Indication: PRODUCT USED FOR UNKNOWN INDICATION
     Dosage: 1TAB PER DAY
     Route: 048
     Dates: start: 2013, end: 2013

REACTIONS (5)
  - Angioedema [Recovered/Resolved]
  - Urticaria [Recovered/Resolved]
  - Dyspnoea [Recovered/Resolved]
  - Dysphonia [Recovered/Resolved]
  - Blood pressure systolic decreased [Recovered/Resolved]
